FAERS Safety Report 9579834 (Version 4)
Quarter: 2015Q3

REPORT INFORMATION
  Report Type: Report from Study
  Country: DE (occurrence: DE)
  Receive Date: 20131002
  Receipt Date: 20150713
  Transmission Date: 20151125
  Serious: Yes (Hospitalization)
  Sender: FDA-Public Use
  Company Number: DE-009507513-1308DEU007951

PATIENT
  Age: 58 Year
  Sex: Female
  Weight: 68 kg

DRUGS (14)
  1. RIBAVIRIN. [Suspect]
     Active Substance: RIBAVIRIN
     Dosage: 800 MG, QD
     Route: 048
     Dates: start: 20131028, end: 20131028
  2. BOCEPREVIR [Suspect]
     Active Substance: BOCEPREVIR
     Indication: HEPATITIS C
     Dosage: 2400 MG PER DAY
     Route: 048
     Dates: start: 20130503, end: 20131213
  3. RIBAVIRIN. [Suspect]
     Active Substance: RIBAVIRIN
     Dosage: 800 MG, QD
     Route: 048
     Dates: start: 20130620, end: 20130718
  4. RIBAVIRIN. [Suspect]
     Active Substance: RIBAVIRIN
     Dosage: 800 MG, QD
     Route: 048
     Dates: start: 20140106, end: 20140308
  5. FELODIPINE. [Concomitant]
     Active Substance: FELODIPINE
  6. METOPROLOL [Concomitant]
     Active Substance: METOPROLOL
  7. RIBAVIRIN. [Suspect]
     Active Substance: RIBAVIRIN
     Dosage: 1000 MG PER DAY
     Route: 048
     Dates: start: 20131029, end: 20140105
  8. PEGINTERFERON ALFA-2B [Suspect]
     Active Substance: PEGINTERFERON ALFA-2B
     Dosage: 80 MICROGRAM PER KILOGRAM, QW
     Route: 058
     Dates: start: 20130524, end: 20130606
  9. RIBAVIRIN. [Suspect]
     Active Substance: RIBAVIRIN
     Indication: HEPATITIS C
     Dosage: 1000 MG PER DAY
     Route: 048
     Dates: start: 20130330, end: 20130619
  10. RIBAVIRIN. [Suspect]
     Active Substance: RIBAVIRIN
     Dosage: 1000 MG PER DAY
     Route: 048
     Dates: start: 20130719, end: 20131027
  11. PEGINTERFERON ALFA-2B [Suspect]
     Active Substance: PEGINTERFERON ALFA-2B
     Dosage: 90 MICROGRAM PER KILOGRAM, QW
     Route: 058
     Dates: start: 20130607, end: 20130718
  12. PEGINTERFERON ALFA-2B [Suspect]
     Active Substance: PEGINTERFERON ALFA-2B
     Indication: HEPATITIS C
     Dosage: 100 MICROGRAM PER KILOGRAM, QW
     Route: 058
     Dates: start: 20130330, end: 20130523
  13. PEGINTERFERON ALFA-2B [Suspect]
     Active Substance: PEGINTERFERON ALFA-2B
     Dosage: 100 MICROGRAM PER KILOGRAM, QW
     Route: 058
     Dates: start: 20130719, end: 20140301
  14. ENALAPRIL MALEATE. [Concomitant]
     Active Substance: ENALAPRIL MALEATE

REACTIONS (5)
  - Neutropenia [Recovered/Resolved]
  - Hyperthyroidism [Recovered/Resolved]
  - Long QT syndrome [Recovered/Resolved]
  - Anaemia [Recovered/Resolved]
  - Neutropenia [Recovered/Resolved]

NARRATIVE: CASE EVENT DATE: 20130522
